FAERS Safety Report 9685588 (Version 2)
Quarter: 2013Q4

REPORT INFORMATION
  Report Type: Report from Study
  Country: DE (occurrence: DE)
  Receive Date: 20131113
  Receipt Date: 20131113
  Transmission Date: 20140711
  Serious: Yes (Hospitalization, Other)
  Sender: FDA-Public Use
  Company Number: DE-TEVA-433215GER

PATIENT
  Age: 39 Year
  Sex: Female
  Weight: 81 kg

DRUGS (2)
  1. COPAXONE [Suspect]
     Indication: MULTIPLE SCLEROSIS
     Route: 058
     Dates: start: 20071001, end: 2008
  2. COPAXONE [Suspect]
     Route: 058
     Dates: start: 2010, end: 20121105

REACTIONS (1)
  - Malignant melanoma stage III [Not Recovered/Not Resolved]
